FAERS Safety Report 5368020-0 (Version None)
Quarter: 2007Q2

REPORT INFORMATION
  Report Type: 
  Country: None (occurrence: None)
  Receive Date: 20070622
  Receipt Date: 20070612
  Transmission Date: 20071010
  Serious: Yes (Other)
  Sender: FDA-Public Use
  Company Number: DE-PFIZER INC-2007048686

PATIENT
  Sex: Male

DRUGS (2)
  1. LYRICA [Suspect]
     Indication: BACK PAIN
     Dosage: DAILY DOSE:25MG
     Route: 048
  2. LYRICA [Suspect]
     Indication: SLEEP DISORDER

REACTIONS (4)
  - ANXIETY [None]
  - BONE PAIN [None]
  - LISTLESS [None]
  - SLEEP DISORDER [None]
